FAERS Safety Report 14140817 (Version 3)
Quarter: 2017Q4

REPORT INFORMATION
  Report Type: Spontaneous
  Country: US (occurrence: US)
  Receive Date: 20171030
  Receipt Date: 20171211
  Transmission Date: 20180321
  Serious: Yes (Hospitalization, Other)
  Sender: FDA-Public Use
  Company Number: US-ASTELLAS-2017US043489

PATIENT
  Age: 77 Year
  Sex: Male

DRUGS (1)
  1. XTANDI [Suspect]
     Active Substance: ENZALUTAMIDE
     Indication: PROSTATE CANCER
     Route: 048
     Dates: start: 20170927

REACTIONS (10)
  - Vertigo [Unknown]
  - Blood glucose increased [Recovered/Resolved]
  - Amnesia [Unknown]
  - Prostatic specific antigen increased [Recovering/Resolving]
  - Hot flush [Not Recovered/Not Resolved]
  - Dysarthria [Recovered/Resolved]
  - Disturbance in attention [Recovering/Resolving]
  - Balance disorder [Unknown]
  - Loss of consciousness [Recovering/Resolving]
  - Dizziness [Recovering/Resolving]

NARRATIVE: CASE EVENT DATE: 20171001
